FAERS Safety Report 15965897 (Version 2)
Quarter: 2019Q2

REPORT INFORMATION
  Report Type: Spontaneous
  Country: US (occurrence: US)
  Receive Date: 20190215
  Receipt Date: 20190425
  Transmission Date: 20190711
  Serious: No
  Sender: FDA-Public Use
  Company Number: US-PFIZER INC-2019047947

PATIENT
  Age: 35 Year
  Sex: Female

DRUGS (1)
  1. XELJANZ XR [Suspect]
     Active Substance: TOFACITINIB CITRATE
     Indication: RHEUMATOID ARTHRITIS
     Dosage: 11 MG, DAILY (30^S)
     Route: 048
     Dates: start: 20190226

REACTIONS (2)
  - Gastrointestinal disorder [Recovered/Resolved]
  - Mycobacterium tuberculosis complex test positive [Unknown]
